FAERS Safety Report 6207457-4 (Version None)
Quarter: 2009Q2

REPORT INFORMATION
  Report Type: 
  Country: None (occurrence: None)
  Receive Date: 20090528
  Receipt Date: 20090525
  Transmission Date: 20091009
  Serious: Yes (Other)
  Sender: FDA-Public Use
  Company Number: JP-PFIZER INC-2009218378

PATIENT

DRUGS (5)
  1. CARDENALIN [Suspect]
     Route: 048
  2. NORVASC [Suspect]
     Route: 048
  3. ASPIRIN [Concomitant]
  4. MEVALOTIN [Concomitant]
  5. FAMOTIDINE [Concomitant]

REACTIONS (1)
  - HYPOKALAEMIA [None]
